FAERS Safety Report 23237287 (Version 2)
Quarter: 2024Q1

REPORT INFORMATION
  Report Type: Report from Study
  Country: US (occurrence: US)
  Receive Date: 20231128
  Receipt Date: 20240116
  Transmission Date: 20240409
  Serious: No
  Sender: FDA-Public Use
  Company Number: US-ACADIA PHARMACEUTICALS INC.-ACA-2023-TRF-005058

PATIENT
  Sex: Female

DRUGS (3)
  1. DAYBUE [Suspect]
     Active Substance: TROFINETIDE
     Dosage: 40 MILLILITER
     Route: 065
     Dates: start: 202309
  2. PEPTO-BISMOL [Concomitant]
     Active Substance: BISMUTH SUBSALICYLATE
  3. GAS-X [Concomitant]
     Active Substance: DIMETHICONE

REACTIONS (5)
  - Hiccups [Unknown]
  - Cough [Unknown]
  - Underdose [Unknown]
  - Diarrhoea [Unknown]
  - Vomiting [Unknown]
